FAERS Safety Report 7183303-X (Version None)
Quarter: 2010Q4

REPORT INFORMATION
  Report Type: 
  Country: None (occurrence: None)
  Receive Date: 20101222
  Receipt Date: 20100722
  Transmission Date: 20110411
  Serious: No
  Sender: FDA-Public Use
  Company Number: A0873736A

PATIENT

DRUGS (1)
  1. FLONASE [Suspect]
     Route: 045

REACTIONS (2)
  - EPISTAXIS [None]
  - VISION BLURRED [None]
